FAERS Safety Report 9127463 (Version 3)
Quarter: 2013Q2

REPORT INFORMATION
  Report Type: Spontaneous
  Country: US (occurrence: US)
  Receive Date: 20130228
  Receipt Date: 20130415
  Transmission Date: 20140414
  Serious: Yes (Death)
  Sender: FDA-Public Use
  Company Number: US-ASTELLAS-2013US002084

PATIENT
  Sex: Female

DRUGS (1)
  1. PROGRAF [Suspect]
     Indication: ILL-DEFINED DISORDER
     Dosage: 2 MG, BID
     Route: 048
     Dates: start: 20120215

REACTIONS (2)
  - Off label use [Unknown]
  - Death [Fatal]
